FAERS Safety Report 17675626 (Version 1)
Quarter: 2020Q2

REPORT INFORMATION
  Report Type: Spontaneous
  Country: US (occurrence: US)
  Receive Date: 20200416
  Receipt Date: 20200416
  Transmission Date: 20200714
  Serious: Yes (Hospitalization)
  Sender: FDA-Public Use
  Company Number: None

PATIENT
  Age: 63 Year
  Sex: Female

DRUGS (6)
  1. PREDNISONE TAB 10 MG [Concomitant]
  2. CAPECITABINE. [Suspect]
     Active Substance: CAPECITABINE
     Indication: BREAST CANCER FEMALE
     Route: 048
     Dates: start: 20200326
  3. DEXAMETHASONE TAB 4 MG [Concomitant]
  4. LORAZEPAM TAB 1 MG [Concomitant]
  5. XARELTO TAB 10 MG [Concomitant]
  6. AMPICILLIN CAP 500 MG [Concomitant]

REACTIONS (1)
  - Erythema [None]
